FAERS Safety Report 8269912-5 (Version None)
Quarter: 2012Q2

REPORT INFORMATION
  Report Type: 
  Country: None (occurrence: None)
  Receive Date: 20120410
  Receipt Date: 20120403
  Transmission Date: 20120825
  Serious: Yes (Other)
  Sender: FDA-Public Use
  Company Number: US-PFIZER INC-2012038783

PATIENT
  Sex: Female
  Weight: 58.957 kg

DRUGS (10)
  1. CELEBREX [Concomitant]
     Indication: NECK PAIN
     Dosage: 200 MG, 2X/DAY
     Route: 048
     Dates: start: 20120321
  2. LISINOPRIL AND HYDROCHLOROTHIAZIDE [Concomitant]
     Dosage: 10-12.5MG TABLET
     Route: 048
  3. NEURONTIN [Concomitant]
     Indication: FIBROMYALGIA
     Dosage: 300 MG, UNK
  4. LIDODERM [Concomitant]
     Indication: NEURALGIA
     Dosage: 1-3 PATCH(ES) DAILY
     Dates: start: 20120322
  5. OXYCODONE HYDROCHLORIDE [Concomitant]
     Dosage: 30 MG, UNK
     Route: 048
  6. MELOXICAM [Concomitant]
     Indication: FIBROMYALGIA
     Dosage: 7.5 MG, 2X/DAY
     Dates: start: 20120322
  7. XANAX [Concomitant]
     Dosage: 2 MG, UNK
     Route: 048
  8. CYMBALTA [Concomitant]
     Dosage: UNK
  9. PRISTIQ [Concomitant]
     Indication: FIBROMYALGIA
     Dosage: 100 MG, 1X/DAY
     Route: 048
     Dates: start: 20120321
  10. LYRICA [Suspect]
     Indication: FIBROMYALGIA
     Dosage: 300 MG, 2X/DAY
     Route: 048

REACTIONS (2)
  - GAIT DISTURBANCE [None]
  - FIBROMYALGIA [None]
